FAERS Safety Report 8244688-6 (Version None)
Quarter: 2012Q1

REPORT INFORMATION
  Report Type: 
  Country: None (occurrence: None)
  Receive Date: 20120329
  Receipt Date: 20120308
  Transmission Date: 20120608
  Serious: No
  Sender: FDA-Public Use
  Company Number: US-MYLANLABS-2012S1002146

PATIENT
  Age: 64 Year
  Sex: Male

DRUGS (3)
  1. FENTANYL-100 [Suspect]
     Indication: PAIN
     Dosage: Q48H
     Route: 062
     Dates: start: 20110101
  2. DRUGS FOR PEPTIC ULCER AND GORD [Concomitant]
     Indication: GASTROOESOPHAGEAL REFLUX DISEASE
  3. ANTIHYPERTENSIVES [Concomitant]
     Indication: BLOOD PRESSURE INCREASED

REACTIONS (3)
  - DRUG INEFFECTIVE [None]
  - DRUG WITHDRAWAL SYNDROME [None]
  - ANXIETY [None]
